FAERS Safety Report 7686793 (Version 14)
Quarter: 2016Q1

REPORT INFORMATION
  Report Type: Report from Study
  Country: JP (occurrence: JP)
  Receive Date: 20101130
  Receipt Date: 20160323
  Transmission Date: 20160526
  Serious: Yes (Hospitalization, Other)
  Sender: FDA-Public Use
  Company Number: JP-JNJFOC-20101108379

PATIENT
  Age: 28 Year
  Sex: Male

DRUGS (74)
  1. PREZISTA [Suspect]
     Active Substance: DARUNAVIR ETHANOLATE
     Indication: HIV INFECTION
     Route: 048
     Dates: start: 20080401
  2. PREZISTA [Suspect]
     Active Substance: DARUNAVIR ETHANOLATE
     Indication: HIV INFECTION
     Dosage: 300 MG X 2 TABLETS PER DAY, TWICE DAILY.
     Route: 048
     Dates: start: 20070401, end: 20080331
  3. TRUVADA [Suspect]
     Active Substance: EMTRICITABINE\TENOFOVIR DISOPROXIL FUMARATE
     Indication: HIV INFECTION
     Route: 048
     Dates: start: 20070401
  4. ISENTRESS [Suspect]
     Active Substance: RALTEGRAVIR POTASSIUM
     Indication: HIV INFECTION
     Route: 048
     Dates: start: 20070423
  5. CROSS EIGHT M [Concomitant]
     Active Substance: ANTIHEMOPHILIC FACTOR HUMAN
     Indication: HAEMORRHOIDS
     Route: 042
     Dates: start: 20120710, end: 20140401
  6. CROSS EIGHT M [Concomitant]
     Active Substance: ANTIHEMOPHILIC FACTOR HUMAN
     Indication: LOWER GASTROINTESTINAL HAEMORRHAGE
     Dosage: DOSE GIVEN ONCE 1/3 DAYS
     Route: 042
     Dates: start: 20120218, end: 20120225
  7. NERIPROCT [Concomitant]
     Indication: HAEMORRHOIDS
     Route: 054
     Dates: start: 20120402, end: 20120902
  8. HIVID [Concomitant]
     Active Substance: ZALCITABINE
     Indication: HIV INFECTION
     Route: 048
     Dates: start: 19961217, end: 19980408
  9. EPIVIR [Suspect]
     Active Substance: LAMIVUDINE
     Indication: HIV INFECTION
     Route: 048
     Dates: start: 20021205, end: 20060904
  10. ZITHROMAC [Suspect]
     Active Substance: AZITHROMYCIN DIHYDRATE
     Indication: HIV INFECTION
     Route: 048
     Dates: start: 20020401, end: 20070807
  11. CROSS EIGHT M [Concomitant]
     Active Substance: ANTIHEMOPHILIC FACTOR HUMAN
     Indication: HAEMORRHOIDS
     Dosage: DOSE GIVEN ONCE 1/3 DAYS
     Route: 042
     Dates: start: 20120213, end: 20120217
  12. CROSS EIGHT M [Concomitant]
     Active Substance: ANTIHEMOPHILIC FACTOR HUMAN
     Indication: HAEMORRHOIDS
     Dosage: DOSE GIVEN ONCE 1/3 DAYS
     Route: 042
     Dates: start: 20120320, end: 20120709
  13. CROSS EIGHT M [Concomitant]
     Active Substance: ANTIHEMOPHILIC FACTOR HUMAN
     Indication: HAEMORRHOIDS
     Route: 042
     Dates: start: 20130825, end: 20130903
  14. CROSS EIGHT M [Concomitant]
     Active Substance: ANTIHEMOPHILIC FACTOR HUMAN
     Indication: LOWER GASTROINTESTINAL HAEMORRHAGE
     Dosage: DOSE GIVEN ONCE 1/3 DAYS
     Route: 042
     Dates: start: 20120302, end: 20120319
  15. FERROUS SULFATE [Concomitant]
     Active Substance: FERROUS SULFATE\FERROUS SULFATE, DRIED
     Indication: ANAEMIA
     Route: 065
     Dates: start: 20120215, end: 20120710
  16. NERIPROCT [Concomitant]
     Indication: HAEMORRHOIDS
     Dosage: 1-3 TIMES A DAY
     Route: 054
     Dates: start: 20120220, end: 20120321
  17. STOCRIN [Concomitant]
     Active Substance: EFAVIRENZ
     Indication: HIV INFECTION
     Route: 048
     Dates: start: 20000105, end: 20000817
  18. VIDEX [Concomitant]
     Active Substance: DIDANOSINE
     Indication: HIV INFECTION
     Route: 048
     Dates: start: 20010611, end: 20010614
  19. KALETRA [Concomitant]
     Active Substance: LOPINAVIR\RITONAVIR
     Indication: HIV INFECTION
     Route: 048
     Dates: start: 20010420, end: 20010421
  20. AZITHROMYCIN HYDRATE [Concomitant]
     Active Substance: AZITHROMYCIN DIHYDRATE
     Indication: HIV INFECTION
     Route: 048
     Dates: start: 20010806, end: 20020331
  21. BAKTAR [Concomitant]
     Active Substance: SULFAMETHOXAZOLE\TRIMETHOPRIM
     Indication: PROPHYLAXIS
     Route: 048
     Dates: start: 20070401, end: 20071106
  22. CROSS EIGHT M [Concomitant]
     Active Substance: ANTIHEMOPHILIC FACTOR HUMAN
     Indication: LOWER GASTROINTESTINAL HAEMORRHAGE
     Dosage: DOSE GIVEN ONCE 1/3 DAYS
     Route: 042
     Dates: start: 20120226, end: 20120301
  23. CROSS EIGHT M [Concomitant]
     Active Substance: ANTIHEMOPHILIC FACTOR HUMAN
     Indication: LOWER GASTROINTESTINAL HAEMORRHAGE
     Route: 042
     Dates: start: 20130825, end: 20130903
  24. CROSS EIGHT M [Concomitant]
     Active Substance: ANTIHEMOPHILIC FACTOR HUMAN
     Indication: LOWER GASTROINTESTINAL HAEMORRHAGE
     Route: 042
     Dates: start: 20120710, end: 20140401
  25. CROSS EIGHT M [Concomitant]
     Active Substance: ANTIHEMOPHILIC FACTOR HUMAN
     Indication: FACTOR VIII DEFICIENCY
     Route: 042
     Dates: start: 20120710, end: 20140401
  26. CROSS EIGHT M [Concomitant]
     Active Substance: ANTIHEMOPHILIC FACTOR HUMAN
     Indication: FACTOR VIII DEFICIENCY
     Dosage: DOSE GIVEN ONCE 1/3 DAYS
     Route: 042
     Dates: start: 20120218, end: 20120225
  27. VIRACEPT [Concomitant]
     Active Substance: NELFINAVIR MESYLATE
     Indication: HIV INFECTION
     Route: 048
     Dates: start: 19980409, end: 20000104
  28. PROZEI [Concomitant]
     Active Substance: AMPRENAVIR
     Indication: HIV INFECTION
     Route: 048
     Dates: start: 20000125, end: 20000817
  29. VIDEX [Concomitant]
     Active Substance: DIDANOSINE
     Indication: HIV INFECTION
     Route: 048
     Dates: start: 20010420, end: 20010421
  30. PREZISTA [Suspect]
     Active Substance: DARUNAVIR ETHANOLATE
     Indication: HIV INFECTION
     Dosage: 300 MG X 2 TABLETS PER DAY, TWICE DAILY.
     Route: 048
     Dates: start: 20060905, end: 20070331
  31. NORVIR [Suspect]
     Active Substance: RITONAVIR
     Indication: HIV INFECTION
     Route: 048
     Dates: start: 20070401, end: 20110725
  32. EPIVIR [Suspect]
     Active Substance: LAMIVUDINE
     Indication: HIV INFECTION
     Route: 048
     Dates: start: 19980409, end: 20000104
  33. CROSS EIGHT M [Concomitant]
     Active Substance: ANTIHEMOPHILIC FACTOR HUMAN
     Indication: FACTOR VIII DEFICIENCY
     Dosage: DOSE GIVEN ONCE 1/3 DAYS
     Route: 042
     Dates: start: 20070401, end: 20120212
  34. CROSS EIGHT M [Concomitant]
     Active Substance: ANTIHEMOPHILIC FACTOR HUMAN
     Indication: FACTOR VIII DEFICIENCY
     Dosage: DOSE GIVEN ONCE 1/3 DAYS
     Route: 042
     Dates: start: 20120302, end: 20120319
  35. POSTERISAN [Concomitant]
     Active Substance: LIDOCAINE
     Indication: GASTROINTESTINAL HAEMORRHAGE
     Route: 061
     Dates: start: 20120220, end: 20120316
  36. NERIPROCT [Concomitant]
     Indication: HAEMORRHOIDS
     Route: 061
     Dates: start: 20140602
  37. ZERIT [Concomitant]
     Active Substance: STAVUDINE
     Indication: HIV INFECTION
     Route: 048
     Dates: start: 20010730, end: 20020603
  38. TRUVADA [Suspect]
     Active Substance: EMTRICITABINE\TENOFOVIR DISOPROXIL FUMARATE
     Indication: HIV INFECTION
     Route: 048
     Dates: start: 20060905
  39. ISENTRESS [Suspect]
     Active Substance: RALTEGRAVIR POTASSIUM
     Indication: HIV INFECTION
     Route: 048
     Dates: start: 20080401, end: 20140616
  40. ZITHROMAC [Suspect]
     Active Substance: AZITHROMYCIN DIHYDRATE
     Indication: PROPHYLAXIS
     Route: 048
     Dates: start: 20020401, end: 20070807
  41. GASCON [Concomitant]
     Active Substance: DIMETHICONE
     Indication: ABDOMINAL DISTENSION
     Route: 048
     Dates: start: 20090408, end: 20131002
  42. BIOFERMIN R [Concomitant]
     Active Substance: BACILLUS SUBTILIS\LACTOBACILLUS ACIDOPHILUS\STREPTOCOCCUS FAECAIS
     Indication: ABDOMINAL DISTENSION
     Route: 048
     Dates: start: 20090408, end: 20140401
  43. BORRAZA-G [Concomitant]
     Active Substance: LIDOCAINE\TRIBENOSIDE
     Indication: HAEMORRHOIDS
     Route: 061
     Dates: start: 20120903
  44. INVIRASE [Concomitant]
     Active Substance: SAQUINAVIR MESYLATE
     Indication: HIV INFECTION
     Route: 048
     Dates: start: 19961217, end: 19980408
  45. EPIVIR [Suspect]
     Active Substance: LAMIVUDINE
     Indication: HIV INFECTION
     Route: 048
     Dates: start: 20010628, end: 20010701
  46. T-20 [Suspect]
     Active Substance: ENFUVIRTIDE
     Indication: PRODUCT USED FOR UNKNOWN INDICATION
     Dosage: 2LU/DAY
     Route: 065
     Dates: start: 20060905, end: 20070422
  47. MK-0518 [Suspect]
     Active Substance: RALTEGRAVIR POTASSIUM
     Indication: HIV INFECTION
     Route: 065
     Dates: start: 20070423
  48. CROSS EIGHT M [Concomitant]
     Active Substance: ANTIHEMOPHILIC FACTOR HUMAN
     Indication: HAEMORRHOIDS
     Dosage: DOSE GIVEN ONCE 1/3 DAYS
     Route: 042
     Dates: start: 20120302, end: 20120319
  49. CROSS EIGHT M [Concomitant]
     Active Substance: ANTIHEMOPHILIC FACTOR HUMAN
     Indication: HAEMORRHOIDS
     Dosage: DOSE GIVEN ONCE 1/3 DAYS
     Route: 042
     Dates: start: 20120226, end: 20120301
  50. CROSS EIGHT M [Concomitant]
     Active Substance: ANTIHEMOPHILIC FACTOR HUMAN
     Indication: FACTOR VIII DEFICIENCY
     Dosage: DOSE GIVEN ONCE 1/3 DAYS
     Route: 042
     Dates: start: 20120320, end: 20120709
  51. CROSS EIGHT M [Concomitant]
     Active Substance: ANTIHEMOPHILIC FACTOR HUMAN
     Indication: FACTOR VIII DEFICIENCY
     Route: 042
     Dates: start: 20130825, end: 20130903
  52. MAGLAX [Concomitant]
     Active Substance: MAGNESIUM OXIDE
     Indication: CONSTIPATION PROPHYLAXIS
     Route: 048
     Dates: start: 20120214, end: 20120502
  53. ZERIT [Concomitant]
     Active Substance: STAVUDINE
     Indication: HIV INFECTION
     Route: 048
     Dates: start: 20010628, end: 20010701
  54. NORVIR [Suspect]
     Active Substance: RITONAVIR
     Indication: HIV INFECTION
     Route: 048
     Dates: start: 20070726
  55. EPIVIR [Suspect]
     Active Substance: LAMIVUDINE
     Indication: HIV INFECTION
     Route: 048
     Dates: start: 20010730, end: 20020603
  56. CROSS EIGHT M [Concomitant]
     Active Substance: ANTIHEMOPHILIC FACTOR HUMAN
     Indication: HAEMORRHOIDS
     Dosage: DOSE GIVEN ONCE 1/3 DAYS
     Route: 042
     Dates: start: 20070401, end: 20120212
  57. CROSS EIGHT M [Concomitant]
     Active Substance: ANTIHEMOPHILIC FACTOR HUMAN
     Indication: HAEMORRHOIDS
     Dosage: DOSE GIVEN ONCE 1/3 DAYS
     Route: 042
     Dates: start: 20120218, end: 20120225
  58. CROSS EIGHT M [Concomitant]
     Active Substance: ANTIHEMOPHILIC FACTOR HUMAN
     Indication: LOWER GASTROINTESTINAL HAEMORRHAGE
     Dosage: DOSE GIVEN ONCE 1/3 DAYS
     Route: 042
     Dates: start: 20120213, end: 20120217
  59. NORVIR [Concomitant]
     Active Substance: RITONAVIR
     Indication: HIV INFECTION
     Route: 048
     Dates: start: 20110726
  60. ZERIT [Concomitant]
     Active Substance: STAVUDINE
     Indication: HIV INFECTION
     Route: 048
     Dates: start: 19980409, end: 20000104
  61. VIRACEPT [Concomitant]
     Active Substance: NELFINAVIR MESYLATE
     Indication: HIV INFECTION
     Route: 048
     Dates: start: 20010628, end: 20010701
  62. VIRACEPT [Concomitant]
     Active Substance: NELFINAVIR MESYLATE
     Indication: HIV INFECTION
     Route: 048
     Dates: start: 20010730, end: 20021005
  63. STOCRIN [Concomitant]
     Active Substance: EFAVIRENZ
     Indication: HIV INFECTION
     Route: 048
     Dates: start: 20021205, end: 20050616
  64. NORVIR [Concomitant]
     Active Substance: RITONAVIR
     Indication: HIV INFECTION
     Route: 048
     Dates: start: 20110726
  65. CROSS EIGHT M [Concomitant]
     Active Substance: ANTIHEMOPHILIC FACTOR HUMAN
     Indication: LOWER GASTROINTESTINAL HAEMORRHAGE
     Dosage: DOSE GIVEN ONCE 1/3 DAYS
     Route: 042
     Dates: start: 20120320, end: 20120709
  66. CROSS EIGHT M [Concomitant]
     Active Substance: ANTIHEMOPHILIC FACTOR HUMAN
     Indication: LOWER GASTROINTESTINAL HAEMORRHAGE
     Dosage: DOSE GIVEN ONCE 1/3 DAYS
     Route: 042
     Dates: start: 20070401, end: 20120212
  67. CROSS EIGHT M [Concomitant]
     Active Substance: ANTIHEMOPHILIC FACTOR HUMAN
     Indication: FACTOR VIII DEFICIENCY
     Dosage: DOSE GIVEN ONCE 1/3 DAYS
     Route: 042
     Dates: start: 20120213, end: 20120217
  68. CROSS EIGHT M [Concomitant]
     Active Substance: ANTIHEMOPHILIC FACTOR HUMAN
     Indication: FACTOR VIII DEFICIENCY
     Dosage: DOSE GIVEN ONCE 1/3 DAYS
     Route: 042
     Dates: start: 20120226, end: 20120301
  69. NERIPROCT [Concomitant]
     Indication: HAEMORRHOIDS
     Route: 061
     Dates: start: 20120903, end: 20121029
  70. ZIAGEN [Concomitant]
     Active Substance: ABACAVIR SULFATE
     Indication: HIV INFECTION
     Route: 048
     Dates: start: 20000105, end: 20000817
  71. PROZEI [Concomitant]
     Active Substance: AMPRENAVIR
     Indication: HIV INFECTION
     Route: 048
     Dates: start: 20000105, end: 20000124
  72. KALETRA [Concomitant]
     Active Substance: LOPINAVIR\RITONAVIR
     Indication: HIV INFECTION
     Route: 048
     Dates: start: 20010611, end: 20010614
  73. COMBIVIR [Concomitant]
     Active Substance: LAMIVUDINE\ZIDOVUDINE
     Indication: HIV INFECTION
     Route: 048
     Dates: start: 20020604, end: 20021005
  74. RETROVIR [Concomitant]
     Active Substance: ZIDOVUDINE
     Indication: HIV INFECTION
     Route: 048
     Dates: start: 20021205, end: 20060223

REACTIONS (14)
  - Hepatic function abnormal [Recovering/Resolving]
  - Bradycardia [Recovering/Resolving]
  - Abdominal distension [Recovering/Resolving]
  - Blood triglycerides increased [Recovering/Resolving]
  - Malaise [Recovering/Resolving]
  - Liver function test abnormal [Recovered/Resolved]
  - Haemorrhoids [Not Recovered/Not Resolved]
  - Atrioventricular block second degree [Not Recovered/Not Resolved]
  - Haemoglobin decreased [Recovered/Resolved]
  - Tachycardia paroxysmal [Recovered/Resolved]
  - Campylobacter gastroenteritis [Recovering/Resolving]
  - Gastrointestinal haemorrhage [Recovering/Resolving]
  - Anaemia [Recovered/Resolved]
  - Liver function test abnormal [Recovering/Resolving]

NARRATIVE: CASE EVENT DATE: 20070423
